FAERS Safety Report 20902705 (Version 1)
Quarter: 2022Q2

REPORT INFORMATION
  Report Type: Spontaneous
  Country: US (occurrence: US)
  Receive Date: 20220601
  Receipt Date: 20220601
  Transmission Date: 20220721
  Serious: Yes (Hospitalization, Other)
  Sender: FDA-Public Use
  Company Number: US-BRACCO-2022US02062

PATIENT
  Age: 65 Year
  Sex: Female

DRUGS (4)
  1. LUMASON [Suspect]
     Active Substance: SULFUR HEXAFLUORIDE
     Indication: Echocardiogram
     Dosage: 1 ML, SINGLE
     Route: 042
     Dates: start: 20220527, end: 20220527
  2. LUMASON [Suspect]
     Active Substance: SULFUR HEXAFLUORIDE
     Indication: Echocardiogram
     Dosage: 1 ML, SINGLE
     Route: 042
     Dates: start: 20220527, end: 20220527
  3. LUMASON [Suspect]
     Active Substance: SULFUR HEXAFLUORIDE
     Indication: Echocardiogram
     Dosage: 1 ML, SINGLE
     Route: 042
     Dates: start: 20220527, end: 20220527
  4. SODIUM CHLORIDE [Concomitant]
     Active Substance: SODIUM CHLORIDE
     Dosage: 5 ML
     Route: 042
     Dates: start: 20220527, end: 20220527

REACTIONS (3)
  - Unresponsive to stimuli [Recovered/Resolved]
  - Pulse absent [Recovered/Resolved]
  - Cough [Recovered/Resolved]

NARRATIVE: CASE EVENT DATE: 20220527
